FAERS Safety Report 11793288 (Version 1)
Quarter: 2015Q4

REPORT INFORMATION
  Report Type: Spontaneous
  Country: US (occurrence: US)
  Receive Date: 20151202
  Receipt Date: 20151202
  Transmission Date: 20160305
  Serious: No
  Sender: FDA-Public Use
  Company Number: US-PFIZER INC-2015400754

PATIENT
  Age: 59 Year
  Sex: Female
  Weight: 73 kg

DRUGS (7)
  1. DEPAKOTE [Concomitant]
     Active Substance: DIVALPROEX SODIUM
     Dosage: 4000 MG, UNK
  2. NEURONTIN [Suspect]
     Active Substance: GABAPENTIN
     Indication: PAIN
  3. DEPAKOTE [Concomitant]
     Active Substance: DIVALPROEX SODIUM
     Dosage: 1500 MG, UNK
  4. NEURONTIN [Suspect]
     Active Substance: GABAPENTIN
     Indication: ANEURYSM REPAIR
     Dosage: UNK AT NIGHT
  5. NEURONTIN [Suspect]
     Active Substance: GABAPENTIN
     Indication: NERVE INJURY
     Dosage: 100 MG,  2 TO 3 TIMES DURING THE DAY
  6. DEPAKOTE [Concomitant]
     Active Substance: DIVALPROEX SODIUM
     Indication: BIPOLAR DISORDER
     Dosage: 2250 MG, UNK
  7. DEPAKOTE [Concomitant]
     Active Substance: DIVALPROEX SODIUM
     Indication: MANIA
     Dosage: 2 OF 50S AND 5 OF 100S

REACTIONS (2)
  - Gait disturbance [Unknown]
  - Product use issue [Unknown]
